FAERS Safety Report 6966160-3 (Version None)
Quarter: 2010Q3

REPORT INFORMATION
  Report Type: 
  Country: None (occurrence: None)
  Receive Date: 20100903
  Receipt Date: 20100825
  Transmission Date: 20110219
  Serious: Yes (Death)
  Sender: FDA-Public Use
  Company Number: GXKR2010GB09643

PATIENT
  Age: 52 Year
  Sex: Male

DRUGS (2)
  1. AMOXICILLIN AND CLAVULANATE POTASSIUM [Suspect]
     Dosage: 500/125 MG, UNK
     Route: 065
  2. ANTICOAGULANTS [Concomitant]

REACTIONS (1)
  - EMBOLISM ARTERIAL [None]
